FAERS Safety Report 4297255-3 (Version None)
Quarter: 2004Q1

REPORT INFORMATION
  Report Type: 
  Country: None (occurrence: None)
  Receive Date: 20040213
  Receipt Date: 20040203
  Transmission Date: 20041129
  Serious: Yes (Other)
  Sender: FDA-Public Use
  Company Number: US-SHR-04-020770

PATIENT
  Age: 78 Year
  Sex: Female

DRUGS (1)
  1. MAGNEVIST [Suspect]
     Indication: NUCLEAR MAGNETIC RESONANCE IMAGING
     Dosage: 60 ML, 1 DOSE, INTRAVENOUS
     Route: 042
     Dates: start: 20040203, end: 20040203

REACTIONS (6)
  - ABDOMINAL PAIN UPPER [None]
  - APHONIA [None]
  - CHEST PAIN [None]
  - CRYING [None]
  - DYSPHAGIA [None]
  - HOARSENESS [None]
